FAERS Safety Report 5419609-1 (Version None)
Quarter: 2007Q3

REPORT INFORMATION
  Report Type: 
  Country: None (occurrence: None)
  Receive Date: 20070816
  Receipt Date: 20070816
  Transmission Date: 20080115
  Serious: No
  Sender: FDA-Public Use
  Company Number: None

PATIENT
  Sex: Female

DRUGS (1)
  1. LEVOTHYROXINE 0.137 MG MYLAN [Suspect]
     Indication: HYPOTHYROIDISM
     Dosage: 0.137 MG DAILY PO
     Route: 048
     Dates: start: 20070223, end: 20070806

REACTIONS (10)
  - AGITATION [None]
  - ANGER [None]
  - ANXIETY [None]
  - DISEASE RECURRENCE [None]
  - HAIR DISORDER [None]
  - HYPERTHYROIDISM [None]
  - INSOMNIA [None]
  - IRRITABILITY [None]
  - THERAPEUTIC RESPONSE UNEXPECTED [None]
  - WEIGHT INCREASED [None]
